FAERS Safety Report 7901103-7 (Version None)
Quarter: 2011Q4

REPORT INFORMATION
  Report Type: 
  Country: None (occurrence: None)
  Receive Date: 20111104
  Receipt Date: 20111004
  Transmission Date: 20120403
  Serious: Yes (Hospitalization, Other)
  Sender: FDA-Public Use
  Company Number: HA11-251-AE

PATIENT
  Age: 29 Year
  Sex: Female
  Weight: 136.0791 kg

DRUGS (4)
  1. ALBUTEROL [Concomitant]
  2. SULFAMETHOXAZOLE AND TRIMETHOPRIM [Suspect]
     Indication: PNEUMONIA
     Dosage: 1 TABLET, BID, ORAL
     Route: 048
     Dates: start: 20110331, end: 20110409
  3. SULFAMETHOXAZOLE AND TRIMETHOPRIM [Suspect]
     Indication: SINUSITIS
     Dosage: 1 TABLET, BID, ORAL
     Route: 048
     Dates: start: 20110331, end: 20110409
  4. ALLEGRA [Concomitant]

REACTIONS (9)
  - MYALGIA [None]
  - DIZZINESS [None]
  - PLATELET COUNT DECREASED [None]
  - PALLOR [None]
  - MUSCLE SPASMS [None]
  - PETECHIAE [None]
  - PYREXIA [None]
  - GINGIVAL BLEEDING [None]
  - ASTHENIA [None]
